FAERS Safety Report 8090577-X (Version None)
Quarter: 2012Q1

REPORT INFORMATION
  Report Type: 
  Country: None (occurrence: None)
  Receive Date: 20120129
  Receipt Date: 20111228
  Transmission Date: 20120608
  Serious: No
  Sender: FDA-Public Use
  Company Number: US-ABBOTT-11P-163-0873750-00

PATIENT
  Age: 38 Year
  Sex: Female

DRUGS (3)
  1. HUMIRA [Suspect]
     Dates: start: 20111111
  2. CYCLOSPORINE [Concomitant]
     Indication: PSORIASIS
     Dosage: ON ODD DAYS 1 TABLET DAILY ON EVEN DAYS 2 TABLETS DAILY
     Dates: start: 20110101
  3. HUMIRA [Suspect]
     Indication: PSORIASIS
     Dates: start: 20111104, end: 20111104

REACTIONS (3)
  - INJECTION SITE PAIN [None]
  - PRURITUS [None]
  - PSORIASIS [None]
